FAERS Safety Report 10170420 (Version 2)
Quarter: 2014Q2

REPORT INFORMATION
  Report Type: Spontaneous
  Country: FR (occurrence: FR)
  Receive Date: 20140513
  Receipt Date: 20140527
  Transmission Date: 20141212
  Serious: Yes (Hospitalization, Other)
  Sender: FDA-Public Use
  Company Number: FR-JNJFOC-20140506167

PATIENT
  Age: 70 Year
  Sex: Female
  Weight: 72.9 kg

DRUGS (15)
  1. REMICADE [Suspect]
     Indication: RHEUMATOID ARTHRITIS
     Dosage: 200 MG
     Route: 042
     Dates: start: 20140325
  2. REMICADE [Suspect]
     Indication: RHEUMATOID ARTHRITIS
     Dosage: 200 MG/INFUSION, THIRD INFLIXIMAB INFUSION
     Route: 042
  3. CORTICOSTEROIDS [Suspect]
     Indication: PRODUCT USED FOR UNKNOWN INDICATION
     Dosage: WEEKLY
     Route: 065
  4. METHOTREXATE [Concomitant]
     Indication: RHEUMATOID ARTHRITIS
     Route: 065
  5. METOJECT [Concomitant]
     Indication: RHEUMATOID ARTHRITIS
     Route: 058
     Dates: start: 200401
  6. SOLUPRED [Concomitant]
     Dosage: STARTED UP TO 10 YEARS AGO
     Route: 048
  7. BISOCE [Concomitant]
     Route: 065
     Dates: start: 20140202, end: 20140402
  8. LASILIX [Concomitant]
     Route: 065
     Dates: start: 20140202, end: 20140402
  9. SERTRALINE [Concomitant]
     Route: 065
     Dates: start: 20140202, end: 20140402
  10. TAHOR [Concomitant]
     Route: 065
     Dates: start: 20140202, end: 20140402
  11. ZOLPIDEM [Concomitant]
     Route: 065
     Dates: start: 20140202, end: 20140402
  12. DIFFU-K [Concomitant]
     Route: 065
     Dates: start: 20140202, end: 20140402
  13. LEVOTHYROX [Concomitant]
     Route: 065
     Dates: start: 20140202, end: 20140402
  14. INEXIUM [Concomitant]
     Route: 065
     Dates: start: 20140202, end: 20140402
  15. TANGANIL [Concomitant]
     Route: 065
     Dates: start: 20140202, end: 20140402

REACTIONS (3)
  - Optic ischaemic neuropathy [Unknown]
  - Blindness [Unknown]
  - Arteriosclerosis [Unknown]
